FAERS Safety Report 4346898-7 (Version None)
Quarter: 2004Q2

REPORT INFORMATION
  Report Type: 
  Country: None (occurrence: None)
  Receive Date: 20040426
  Receipt Date: 19950131
  Transmission Date: 20050107
  Serious: Yes (Life-Threatening)
  Sender: FDA-Public Use
  Company Number: AUS/95/00010/LEX

PATIENT
  Age: 22 Year
  Sex: Male
  Weight: 67 kg

DRUGS (5)
  1. VALPROATE SODIUM [Suspect]
     Dosage: 20 G, ONCE/SINGLE
     Dates: start: 20040420
  2. RISPERIDONE [Suspect]
     Dosage: 14 MG, ONCE/SINGLE
  3. CLOZARIL [Suspect]
     Dosage: 12 - 750 MG/DAY
     Dates: start: 19950111
  4. CLOZARIL [Suspect]
     Dosage: 7.7 G, ONCE/SINGLE
     Dates: start: 20040420
  5. CLOZARIL [Suspect]
     Dosage: 200 MG, QD
     Route: 048
     Dates: start: 19940323, end: 19940526

REACTIONS (8)
  - COMA [None]
  - DELIRIUM [None]
  - EXTRADURAL HAEMATOMA [None]
  - HAEMATOMA [None]
  - INCOHERENT [None]
  - MULTIPLE DRUG OVERDOSE [None]
  - ROAD TRAFFIC ACCIDENT [None]
  - SUICIDE ATTEMPT [None]
